FAERS Safety Report 13494005 (Version 2)
Quarter: 2017Q2

REPORT INFORMATION
  Report Type: Spontaneous
  Country: US (occurrence: US)
  Receive Date: 20170427
  Receipt Date: 20170428
  Transmission Date: 20170830
  Serious: Yes (Other)
  Sender: FDA-Public Use
  Company Number: US-JNJFOC-20170418813

PATIENT
  Age: 56 Year
  Sex: Female
  Weight: 74.84 kg

DRUGS (9)
  1. ATORVASTATIN [Concomitant]
     Active Substance: ATORVASTATIN
     Indication: BLOOD CHOLESTEROL INCREASED
     Route: 065
  2. OMEPRAZOLE. [Concomitant]
     Active Substance: OMEPRAZOLE
     Indication: GASTROOESOPHAGEAL REFLUX DISEASE
     Route: 065
  3. CHLORAZEPAM [Concomitant]
     Active Substance: CHLORAZEPAM
     Indication: ANXIETY
     Dosage: 20 PLUS YEAR
     Route: 065
  4. TYLENOL PM EXTRA STRENGTH [Suspect]
     Active Substance: ACETAMINOPHEN\DIPHENHYDRAMINE HYDROCHLORIDE
     Indication: PRODUCT USED FOR UNKNOWN INDICATION
     Dosage: 3-4 PER DAY, OVER THE COURSE OF 9 MONTHS
     Route: 048
  5. LAMOTRIGINE. [Concomitant]
     Active Substance: LAMOTRIGINE
     Indication: SCHIZOAFFECTIVE DISORDER
     Route: 065
  6. MELATONIN [Concomitant]
     Active Substance: MELATONIN
     Indication: SLEEP DISORDER THERAPY
     Route: 065
  7. MELOXICAM. [Concomitant]
     Active Substance: MELOXICAM
     Indication: ARTHRITIS
     Dosage: 5-6 YEARS
     Route: 065
  8. ARIPIPRAZOLE. [Concomitant]
     Active Substance: ARIPIPRAZOLE
     Indication: DEPRESSION
     Route: 065
  9. TRAZODONE [Concomitant]
     Active Substance: TRAZODONE HYDROCHLORIDE
     Indication: SLEEP DISORDER THERAPY
     Route: 065

REACTIONS (10)
  - Skin discolouration [Recovered/Resolved]
  - Nausea [Not Recovered/Not Resolved]
  - Toxicity to various agents [Not Recovered/Not Resolved]
  - Drug use disorder [Unknown]
  - Arrhythmia [Not Recovered/Not Resolved]
  - Dyspepsia [Not Recovered/Not Resolved]
  - Hepatic pain [Not Recovered/Not Resolved]
  - Abdominal pain upper [Not Recovered/Not Resolved]
  - Dyspnoea [Not Recovered/Not Resolved]
  - Extra dose administered [Not Recovered/Not Resolved]
